FAERS Safety Report 5290485-3 (Version None)
Quarter: 2007Q2

REPORT INFORMATION
  Report Type: 
  Country: None (occurrence: None)
  Receive Date: 20070404
  Receipt Date: 20070404
  Transmission Date: 20071010
  Serious: No
  Sender: FDA-Public Use
  Company Number: None

PATIENT

DRUGS (3)
  1. GALLIUM CITRATE GA 67 [Suspect]
     Dosage: INJECTABLE
  2. TECHNETIUM 66 INJ [Suspect]
  3. GADOLINIUM [Suspect]

REACTIONS (13)
  - ALOPECIA [None]
  - BLINDNESS [None]
  - DIARRHOEA [None]
  - FRUSTRATION [None]
  - GENERAL PHYSICAL HEALTH DETERIORATION [None]
  - HEPATIC FUNCTION ABNORMAL [None]
  - HEPATITIS [None]
  - HYPERTENSION [None]
  - MEDICATION ERROR [None]
  - NO REACTION ON PREVIOUS EXPOSURE TO DRUG [None]
  - PALPITATIONS [None]
  - RENAL IMPAIRMENT [None]
  - TACHYCARDIA [None]
